FAERS Safety Report 7071156-X (Version None)
Quarter: 2010Q4

REPORT INFORMATION
  Report Type: 
  Country: None (occurrence: None)
  Receive Date: 20101029
  Receipt Date: 20101018
  Transmission Date: 20110411
  Serious: No
  Sender: FDA-Public Use
  Company Number: US-PFIZER INC-2010132739

PATIENT
  Sex: Male

DRUGS (4)
  1. GEODON [Suspect]
     Dosage: 80 MG, 2X/DAY
  2. SEROQUEL [Concomitant]
     Dosage: UNK
  3. DEPAKOTE [Concomitant]
     Dosage: UNK
  4. PROLACTIN [Concomitant]
     Dosage: UNK

REACTIONS (1)
  - BLOOD GLUCOSE ABNORMAL [None]
